FAERS Safety Report 24314632 (Version 1)
Quarter: 2024Q3

REPORT INFORMATION
  Report Type: Spontaneous
  Country: US (occurrence: US)
  Receive Date: 20240913
  Receipt Date: 20240913
  Transmission Date: 20241017
  Serious: Yes (Other)
  Sender: AMGEN
  Company Number: US-AMGEN-USASP2024179690

PATIENT

DRUGS (2)
  1. TEPROTUMUMAB [Suspect]
     Active Substance: TEPROTUMUMAB
     Indication: Endocrine ophthalmopathy
     Dosage: UNK
     Route: 065
  2. PREDNISONE [Suspect]
     Active Substance: PREDNISONE
     Indication: Endocrine ophthalmopathy
     Dosage: UNK
     Route: 065

REACTIONS (8)
  - Exophthalmos [Unknown]
  - Optic neuropathy [Unknown]
  - Optic neuritis [Unknown]
  - Eyelid retraction [Unknown]
  - Eyelid oedema [Unknown]
  - Orbital oedema [Unknown]
  - Strabismus [Unknown]
  - Off label use [Unknown]
